FAERS Safety Report 4637441-3 (Version None)
Quarter: 2005Q2

REPORT INFORMATION
  Report Type: 
  Country: None (occurrence: None)
  Receive Date: 20050325
  Receipt Date: 20041206
  Transmission Date: 20051028
  Serious: No
  Sender: FDA-Public Use
  Company Number: USA041285413

PATIENT
  Age: 78 Year
  Sex: Female

DRUGS (6)
  1. FORTEO [Suspect]
     Dates: start: 20040911
  2. ATENOLOL [Concomitant]
  3. ASPIRIN [Concomitant]
  4. ELIDEL(PIMECROLIMUS) [Concomitant]
  5. PREMARIN H-C VAGINAL CREAM [Concomitant]
  6. ASPERCREME(TROLAMINE SALICYLATE) [Concomitant]

REACTIONS (6)
  - CATARACT [None]
  - PAIN IN EXTREMITY [None]
  - PRURITUS [None]
  - RASH [None]
  - SENSORY DISTURBANCE [None]
  - SINUSITIS [None]
